FAERS Safety Report 17704636 (Version 2)
Quarter: 2020Q2

REPORT INFORMATION
  Report Type: Spontaneous
  Country: US (occurrence: US)
  Receive Date: 20200424
  Receipt Date: 20200527
  Transmission Date: 20200714
  Serious: Yes (Hospitalization)
  Sender: FDA-Public Use
  Company Number: US-JNJFOC-20200419647

PATIENT
  Sex: Female

DRUGS (4)
  1. INVEGA SUSTENNA [Suspect]
     Active Substance: PALIPERIDONE PALMITATE
     Indication: PRODUCT USED FOR UNKNOWN INDICATION
     Dosage: LAST DOSE WAS ADMINISTERED ON 28-FEB-2020
     Route: 030
  2. INVEGA SUSTENNA [Suspect]
     Active Substance: PALIPERIDONE PALMITATE
  3. HALDOL [Concomitant]
     Active Substance: HALOPERIDOL
  4. INVEGA SUSTENNA [Suspect]
     Active Substance: PALIPERIDONE PALMITATE

REACTIONS (7)
  - Product quality issue [Unknown]
  - Hallucination, auditory [Unknown]
  - Drug ineffective [Unknown]
  - Poor personal hygiene [Unknown]
  - Nicotine dependence [Unknown]
  - Depressed mood [Unknown]
  - Aggression [Unknown]

NARRATIVE: CASE EVENT DATE: 20200228
